FAERS Safety Report 10225944 (Version 2)
Quarter: 2014Q2

REPORT INFORMATION
  Report Type: Spontaneous
  Country: US (occurrence: US)
  Receive Date: 20140609
  Receipt Date: 20140609
  Transmission Date: 20141212
  Serious: Yes (Other)
  Sender: FDA-Public Use
  Company Number: US-ASTELLAS-2013US004717

PATIENT
  Age: 70 Year
  Sex: Male

DRUGS (4)
  1. PROGRAF [Suspect]
     Indication: LIVER TRANSPLANT
     Route: 048
     Dates: start: 20110119
  2. PROGRAF [Suspect]
     Dosage: 0.5 MG, ONCE DAILY
     Route: 048
     Dates: start: 20110616
  3. NIACIN [Suspect]
     Indication: PRODUCT USED FOR UNKNOWN INDICATION
     Route: 065
  4. OXYCODON [Concomitant]
     Indication: PRODUCT USED FOR UNKNOWN INDICATION
     Route: 065

REACTIONS (2)
  - Blood pressure abnormal [Recovered/Resolved]
  - Flushing [Recovered/Resolved]
